FAERS Safety Report 15225786 (Version 3)
Quarter: 2018Q3

REPORT INFORMATION
  Report Type: Spontaneous
  Country: US (occurrence: US)
  Receive Date: 20180801
  Receipt Date: 20180912
  Transmission Date: 20181010
  Serious: Yes (Other)
  Sender: FDA-Public Use
  Company Number: US-PFIZER INC-2018307572

PATIENT
  Age: 68 Year
  Sex: Male
  Weight: 92.8 kg

DRUGS (13)
  1. OMEPRAZOLE. [Concomitant]
     Active Substance: OMEPRAZOLE
     Dosage: 40 MG, 2X/DAY
  2. QNASL [Concomitant]
     Active Substance: BECLOMETHASONE DIPROPIONATE
     Indication: SINUS DISORDER
     Dosage: UNK UNK, 2X/DAY (2 SPRAYS IN EACH NOSTRIL/OUT OF THAT MEDICATION FOR MONTH )
     Route: 045
  3. MONTELUKAST [Concomitant]
     Active Substance: MONTELUKAST SODIUM
     Indication: SINUS DISORDER
     Dosage: 10 MG, 1X/DAY (4?5 YEARS)
     Route: 048
  4. XYZAL [Concomitant]
     Active Substance: LEVOCETIRIZINE DIHYDROCHLORIDE
     Indication: HYPERSENSITIVITY
     Dosage: UNK, 1X/DAY (AT NIGHT)
  5. FLUOXETINE [Concomitant]
     Active Substance: FLUOXETINE HYDROCHLORIDE
     Dosage: 20 MG, 1X/DAY
  6. ATORVASTATIN [Concomitant]
     Active Substance: ATORVASTATIN
     Dosage: 40 MG, DAILY (AT BEDTIME)
  7. XHANCE [Concomitant]
     Active Substance: FLUTICASONE PROPIONATE
     Indication: SINUS DISORDER
     Dosage: 93 UG, 1X/DAY (93MCG, ONE SPRAY IN EACH NOSTRIL)
     Dates: start: 201808
  8. LYRICA [Suspect]
     Active Substance: PREGABALIN
     Indication: FIBROMYALGIA
     Dosage: 50 MG, UNK
  9. LISINOPRIL. [Concomitant]
     Active Substance: LISINOPRIL
     Dosage: 20 MG, 1X/DAY
  10. XYZAL [Concomitant]
     Active Substance: LEVOCETIRIZINE DIHYDROCHLORIDE
     Dosage: 5 MG, 1X/DAY
     Route: 048
     Dates: start: 2018
  11. TERAZOSIN [Concomitant]
     Active Substance: TERAZOSIN\TERAZOSIN HYDROCHLORIDE
     Dosage: 5 MG, DAILY (AT NIGHT)
  12. LYRICA [Suspect]
     Active Substance: PREGABALIN
     Indication: ARTHRALGIA
     Dosage: UNK, 3X/DAY
     Dates: start: 2018, end: 2018
  13. LYRICA [Suspect]
     Active Substance: PREGABALIN
     Indication: MYALGIA
     Dosage: UNK, 2X/DAY (50 MG;ONE IN THE MORNING AND 2 AT NIGHT)
     Route: 048
     Dates: start: 2018

REACTIONS (7)
  - Obesity [Unknown]
  - Weight decreased [Unknown]
  - Product use issue [Unknown]
  - Diabetes mellitus [Unknown]
  - Pruritus [Unknown]
  - Paraesthesia [Unknown]
  - Intentional product misuse [Unknown]

NARRATIVE: CASE EVENT DATE: 2018
